FAERS Safety Report 23927163 (Version 1)
Quarter: 2024Q2

REPORT INFORMATION
  Report Type: Spontaneous
  Country: US (occurrence: None)
  Receive Date: 20240531
  Receipt Date: 20240531
  Transmission Date: 20240716
  Serious: Yes (Disabling, Other)
  Sender: FDA-Public Use
  Company Number: None

PATIENT
  Age: 57 Year
  Sex: Female
  Weight: 72 kg

DRUGS (11)
  1. METFORMIN HYDROCHLORIDE [Suspect]
     Active Substance: METFORMIN HYDROCHLORIDE
     Indication: Glucose tolerance impaired
     Dosage: OTHER QUANTITY : 1 TABLET(S);?FREQUENCY : DAILY;?
     Route: 048
     Dates: start: 20230301, end: 20231001
  2. WELLBUTRIN [Concomitant]
     Active Substance: BUPROPION HYDROCHLORIDE
  3. CYMBALTA [Concomitant]
     Active Substance: DULOXETINE HYDROCHLORIDE
  4. PLAQUENIL [Concomitant]
     Active Substance: HYDROXYCHLOROQUINE SULFATE
  5. TOPAMAX [Concomitant]
     Active Substance: TOPIRAMATE
  6. REQUIP [Concomitant]
     Active Substance: ROPINIROLE HYDROCHLORIDE
  7. AJOVY [Concomitant]
     Active Substance: FREMANEZUMAB-VFRM
  8. PREVACID [Concomitant]
     Active Substance: LANSOPRAZOLE
  9. VALACYCLOVIR [Concomitant]
     Active Substance: VALACYCLOVIR HYDROCHLORIDE
  10. VITAMIN D3 [Concomitant]
     Active Substance: CHOLECALCIFEROL
  11. CALCIUM [Concomitant]
     Active Substance: CALCIUM

REACTIONS (10)
  - Rectal haemorrhage [None]
  - Vomiting [None]
  - Diarrhoea [None]
  - Pain [None]
  - Depression [None]
  - Disturbance in attention [None]
  - Impaired work ability [None]
  - Suicidal ideation [None]
  - Increased need for sleep [None]
  - Weight decreased [None]

NARRATIVE: CASE EVENT DATE: 20230301
